FAERS Safety Report 12550006 (Version 1)
Quarter: 2016Q3

REPORT INFORMATION
  Report Type: Spontaneous
  Country: US (occurrence: US)
  Receive Date: 20160712
  Receipt Date: 20160712
  Transmission Date: 20161109
  Serious: Yes (Hospitalization)
  Sender: FDA-Public Use
  Company Number: US-IMPAX LABORATORIES, INC-2016-IPXL-00726

PATIENT
  Age: 54 Year
  Sex: Male

DRUGS (3)
  1. PHENYTOIN CHEWABLE [Suspect]
     Active Substance: PHENYTOIN
     Dosage: 100 MG, EVERY 8HR
     Route: 048
  2. PHENYTOIN CHEWABLE [Suspect]
     Active Substance: PHENYTOIN
     Indication: SEIZURE
     Dosage: (1,000 MG AT A RATE OF 50 MG/MIN)
     Route: 042
  3. AMIODARONE [Suspect]
     Active Substance: AMIODARONE
     Indication: PURPLE GLOVE SYNDROME
     Dosage: 300 MG, 1 ONLY
     Route: 042

REACTIONS (2)
  - Incorrect drug administration rate [Unknown]
  - Purple glove syndrome [Recovering/Resolving]
